FAERS Safety Report 16056168 (Version 1)
Quarter: 2019Q2

REPORT INFORMATION
  Report Type: Spontaneous
  Country: US (occurrence: US)
  Receive Date: 20190308
  Receipt Date: 20190308
  Transmission Date: 20190711
  Serious: Yes (Hospitalization)
  Sender: FDA-Public Use
  Company Number: None

PATIENT
  Age: 77 Year
  Sex: Male
  Weight: 78 kg

DRUGS (2)
  1. MEKTOVI [Suspect]
     Active Substance: BINIMETINIB
     Indication: RENAL CANCER
     Route: 048
     Dates: start: 20190204
  2. BRAFTOVI [Suspect]
     Active Substance: ENCORAFENIB
     Indication: RENAL CANCER
     Route: 048
     Dates: start: 20190204

REACTIONS (1)
  - Cerebral haemorrhage [None]
